FAERS Safety Report 8662243 (Version 3)
Quarter: 2013Q3

REPORT INFORMATION
  Report Type: Report from Study
  Country: NL (occurrence: NL)
  Receive Date: 20120712
  Receipt Date: 20130820
  Transmission Date: 20140515
  Serious: Yes (Hospitalization)
  Sender: FDA-Public Use
  Company Number: NL-BAYER-2012-066196

PATIENT
  Age: 85 Year
  Sex: Male

DRUGS (15)
  1. SORAFENIB (RAF KINASE INHIBITOR) [Suspect]
     Indication: METASTATIC RENAL CELL CARCINOMA
     Dosage: DAILY DOSE: 800  MG
     Dates: start: 20090924
  2. NIFEDIPINE XL [Concomitant]
     Dosage: DAILY DOSE: 60 MG
  3. VALSARTAN [Concomitant]
     Dosage: DAILY DOSE: 160 MG
     Dates: end: 20120626
  4. PREDNISON [Concomitant]
     Dosage: DAILY DOSE: 2.5 MG
     Dates: end: 20120614
  5. OMEPRAZOLE [Concomitant]
     Dosage: DAILY DOSE: 40 MG
  6. OMEPRAZOLE [Concomitant]
     Dosage: DAILY DOSE: 80 MG
  7. PARACETAMOL [Concomitant]
     Dosage: 500 MG, PRN
  8. FUROSEMIDE [Concomitant]
     Dosage: 40 MG, BIW
  9. FUROSEMIDE [Concomitant]
     Dosage: 40 MG, OW
  10. FUROSEMIDE [Concomitant]
     Dosage: DAILY DOSE: 20 MG
     Route: 042
     Dates: start: 20120614, end: 20120614
  11. FUROSEMIDE [Concomitant]
     Dosage: UNK, PRN
  12. ACENOCOUMAROL [Concomitant]
     Dosage: UNK
     Dates: end: 20120614
  13. TINZAPARINE [Concomitant]
     Dosage: DAILY DOSE: 0.7 ML
     Dates: start: 20120619, end: 20120626
  14. ESOMEPRAZOLE [Concomitant]
     Dosage: 80 MG DAILY
  15. INNOHEP [Concomitant]
     Dosage: 0.7 ML DAILY
     Dates: end: 20120626

REACTIONS (4)
  - Duodenal ulcer [None]
  - Anaemia [None]
  - Circulatory collapse [None]
  - Gastric ulcer haemorrhage [Recovered/Resolved]
